FAERS Safety Report 7736861-8 (Version None)
Quarter: 2011Q3

REPORT INFORMATION
  Report Type: 
  Country: None (occurrence: None)
  Receive Date: 20110908
  Receipt Date: 20110829
  Transmission Date: 20111222
  Serious: Yes (Hospitalization)
  Sender: FDA-Public Use
  Company Number: PHHY2011JP36059

PATIENT
  Sex: Male

DRUGS (8)
  1. AFINITOR [Suspect]
     Dosage: 5 MG,
     Route: 048
     Dates: start: 20101014, end: 20101223
  2. AFINITOR [Suspect]
     Dosage: 5 MG,
     Route: 048
     Dates: start: 20110811
  3. AFINITOR [Suspect]
     Indication: METASTATIC RENAL CELL CARCINOMA
     Dosage: 10 MG,
     Route: 048
     Dates: start: 20100811, end: 20100901
  4. SORAFENIB TOSILATE [Concomitant]
     Indication: METASTATIC RENAL CELL CARCINOMA
     Dosage: 800 MG, UNK
     Route: 048
     Dates: start: 20080701, end: 20100706
  5. CANDESARTAN CILEXETIL [Concomitant]
     Dosage: 12 MG,
     Route: 048
     Dates: start: 20100811
  6. PREDNISOLONE [Concomitant]
     Dosage: 5 MG, UNK
     Route: 048
     Dates: start: 20100811
  7. AFINITOR [Suspect]
     Dosage: 5 MG,
     Route: 048
     Dates: start: 20110103, end: 20110207
  8. CANDESARTAN CILEXETIL [Concomitant]
     Dosage: 12 MG,
     Route: 048

REACTIONS (2)
  - OEDEMA PERIPHERAL [None]
  - ASCITES [None]
